FAERS Safety Report 20124739 (Version 1)
Quarter: 2021Q4

REPORT INFORMATION
  Report Type: Report from Study
  Country: CA (occurrence: CA)
  Receive Date: 20211129
  Receipt Date: 20211129
  Transmission Date: 20220303
  Serious: Yes (Other)
  Sender: FDA-Public Use
  Company Number: CA-JNJFOC-20211143790

PATIENT
  Age: 35 Year
  Sex: Male

DRUGS (5)
  1. MACITENTAN [Suspect]
     Active Substance: MACITENTAN
     Indication: Pulmonary hypertension
     Route: 048
     Dates: start: 20150220
  2. ADCIRCA [Suspect]
     Active Substance: TADALAFIL
     Indication: Product used for unknown indication
     Route: 065
  3. GRAVOL [Concomitant]
     Active Substance: DIMENHYDRINATE
  4. PANTOPRAZOLE SODIUM [Concomitant]
     Active Substance: PANTOPRAZOLE SODIUM
     Dosage: DAILY AM
  5. TYLENOL [Concomitant]
     Active Substance: ACETAMINOPHEN
     Dosage: WHEN NEEDED

REACTIONS (3)
  - Pulmonary arterial hypertension [Unknown]
  - Decreased appetite [Unknown]
  - Irritability [Unknown]
